FAERS Safety Report 5729194-2 (Version None)
Quarter: 2008Q2

REPORT INFORMATION
  Report Type: 
  Country: None (occurrence: None)
  Receive Date: 20080506
  Receipt Date: 20080424
  Transmission Date: 20081010
  Serious: Yes (Other)
  Sender: FDA-Public Use
  Company Number: GB-PFIZER INC-2008037411

PATIENT
  Age: 55 Year
  Sex: Female

DRUGS (2)
  1. CHANTIX [Suspect]
     Route: 048
  2. TOPIRAMATE [Concomitant]

REACTIONS (2)
  - CONVULSION [None]
  - EPILEPSY [None]
